FAERS Safety Report 22631271 (Version 1)
Quarter: 2023Q2

REPORT INFORMATION
  Report Type: Spontaneous
  Country: CN (occurrence: CN)
  Receive Date: 20230623
  Receipt Date: 20230623
  Transmission Date: 20230722
  Serious: Yes (Death, Hospitalization, Other)
  Sender: FDA-Public Use
  Company Number: CN-STERISCIENCE B.V.-2023-ST-001526

PATIENT
  Age: 41 Year
  Sex: Male

DRUGS (27)
  1. VANCOMYCIN [Suspect]
     Active Substance: VANCOMYCIN
     Indication: Abdominal infection
     Dosage: UNK
     Route: 065
  2. VANCOMYCIN [Suspect]
     Active Substance: VANCOMYCIN
     Indication: Pneumonia
  3. VANCOMYCIN [Suspect]
     Active Substance: VANCOMYCIN
     Indication: Klebsiella infection
  4. PIPERACILLIN SODIUM\TAZOBACTAM SODIUM [Suspect]
     Active Substance: PIPERACILLIN SODIUM\TAZOBACTAM SODIUM
     Indication: Abdominal infection
     Dosage: UNK
     Route: 065
  5. PIPERACILLIN SODIUM\TAZOBACTAM SODIUM [Suspect]
     Active Substance: PIPERACILLIN SODIUM\TAZOBACTAM SODIUM
     Indication: Pneumonia
  6. PIPERACILLIN SODIUM\TAZOBACTAM SODIUM [Suspect]
     Active Substance: PIPERACILLIN SODIUM\TAZOBACTAM SODIUM
     Indication: Klebsiella infection
  7. CEFOPERAZONE SODIUM\SULBACTAM SODIUM [Suspect]
     Active Substance: CEFOPERAZONE SODIUM\SULBACTAM SODIUM
     Indication: Abdominal infection
     Dosage: UNK
     Route: 065
  8. CEFOPERAZONE SODIUM\SULBACTAM SODIUM [Suspect]
     Active Substance: CEFOPERAZONE SODIUM\SULBACTAM SODIUM
     Indication: Pneumonia
  9. CEFOPERAZONE SODIUM\SULBACTAM SODIUM [Suspect]
     Active Substance: CEFOPERAZONE SODIUM\SULBACTAM SODIUM
     Indication: Klebsiella infection
  10. IMIPENEM [Suspect]
     Active Substance: IMIPENEM
     Indication: Abdominal infection
     Dosage: UNK
     Route: 065
  11. IMIPENEM [Suspect]
     Active Substance: IMIPENEM
     Indication: Pneumonia
  12. IMIPENEM [Suspect]
     Active Substance: IMIPENEM
     Indication: Klebsiella infection
  13. AMIKACIN [Suspect]
     Active Substance: AMIKACIN
     Indication: Abdominal infection
     Dosage: UNK
     Route: 065
  14. AMIKACIN [Suspect]
     Active Substance: AMIKACIN
     Indication: Pneumonia
  15. AMIKACIN [Suspect]
     Active Substance: AMIKACIN
     Indication: Klebsiella infection
  16. LEVOFLOXACIN [Suspect]
     Active Substance: LEVOFLOXACIN
     Indication: Abdominal infection
     Dosage: UNK
     Route: 065
  17. LEVOFLOXACIN [Suspect]
     Active Substance: LEVOFLOXACIN
     Indication: Pneumonia
  18. LEVOFLOXACIN [Suspect]
     Active Substance: LEVOFLOXACIN
     Indication: Klebsiella infection
  19. AVIBACTAM SODIUM\CEFTAZIDIME [Suspect]
     Active Substance: AVIBACTAM SODIUM\CEFTAZIDIME
     Indication: Abdominal infection
     Dosage: 2.5 GRAM, BID
     Route: 042
  20. AVIBACTAM SODIUM\CEFTAZIDIME [Suspect]
     Active Substance: AVIBACTAM SODIUM\CEFTAZIDIME
     Indication: Pneumonia
  21. AVIBACTAM SODIUM\CEFTAZIDIME [Suspect]
     Active Substance: AVIBACTAM SODIUM\CEFTAZIDIME
     Indication: Klebsiella infection
  22. METRONIDAZOLE [Suspect]
     Active Substance: METRONIDAZOLE
     Indication: Abdominal infection
     Dosage: UNK
     Route: 065
  23. METRONIDAZOLE [Suspect]
     Active Substance: METRONIDAZOLE
     Indication: Pneumonia
  24. METRONIDAZOLE [Suspect]
     Active Substance: METRONIDAZOLE
     Indication: Klebsiella infection
  25. AZTREONAM [Suspect]
     Active Substance: AZTREONAM
     Indication: Abdominal infection
     Dosage: UNK
     Route: 065
  26. AZTREONAM [Suspect]
     Active Substance: AZTREONAM
     Indication: Pneumonia
  27. AZTREONAM [Suspect]
     Active Substance: AZTREONAM
     Indication: Klebsiella infection

REACTIONS (2)
  - Treatment failure [Fatal]
  - Off label use [Unknown]
